FAERS Safety Report 8072862-0 (Version None)
Quarter: 2011Q4

REPORT INFORMATION
  Report Type: 
  Country: None (occurrence: None)
  Receive Date: 20111221
  Receipt Date: 20110913
  Transmission Date: 20120403
  Serious: Yes (Hospitalization)
  Sender: FDA-Public Use
  Company Number: PHEH2011US03427

PATIENT
  Age: 18 Year
  Sex: Female
  Weight: 41.7 kg

DRUGS (1)
  1. EXJADE [Suspect]
     Indication: SICKLE CELL ANAEMIA
     Dosage: 1250 MG, DAILY, ORAL
     Route: 048
     Dates: start: 20090903

REACTIONS (1)
  - SICKLE CELL ANAEMIA WITH CRISIS [None]
